FAERS Safety Report 9236374 (Version 1)
Quarter: 2013Q2

REPORT INFORMATION
  Report Type: Spontaneous
  Country: IE (occurrence: IE)
  Receive Date: 20130417
  Receipt Date: 20130417
  Transmission Date: 20140414
  Serious: Yes (Other)
  Sender: FDA-Public Use
  Company Number: IE-TEVA-397021ISR

PATIENT
  Age: 53 Year
  Sex: Female

DRUGS (6)
  1. AZILECT [Suspect]
     Indication: PARKINSON^S DISEASE
     Dosage: 1 MILLIGRAM DAILY;
  2. AMANTADINE [Suspect]
     Indication: PARKINSON^S DISEASE
     Dosage: 300 MILLIGRAM DAILY;
  3. STALEVO 75MG [Suspect]
     Indication: PARKINSON^S DISEASE
  4. STALEVO [Suspect]
  5. ROPINIROLE [Suspect]
     Indication: PARKINSON^S DISEASE
     Dosage: 8 MILLIGRAM DAILY;
  6. ROPINIROLE [Suspect]
     Dosage: ROPINIROLE WAS  TAPERED AND DISCONTINUED

REACTIONS (6)
  - Suicidal ideation [Not Recovered/Not Resolved]
  - Impulsive behaviour [Not Recovered/Not Resolved]
  - Hypersexuality [Recovered/Resolved]
  - Compulsive shopping [Not Recovered/Not Resolved]
  - Impulse-control disorder [Not Recovered/Not Resolved]
  - Feeling guilty [None]
